FAERS Safety Report 8833986 (Version 1)
Quarter: 2012Q4

REPORT INFORMATION
  Report Type: 
  Country: US (occurrence: US)
  Receive Date: 20121010
  Receipt Date: 20121010
  Transmission Date: 20130627
  Serious: No
  Sender: FDA-Public Use
  Company Number: US-ASTRAZENECA-2012SE75676

PATIENT
  Age: 48 Year
  Sex: Male

DRUGS (7)
  1. SEROQUEL XR [Suspect]
     Indication: EMOTIONAL DISORDER
     Route: 048
  2. SEROQUEL XR [Suspect]
     Indication: ANXIETY
     Route: 048
  3. SEROQUEL XR [Suspect]
     Indication: DEPRESSION
     Route: 048
  4. SEROQUEL XR [Suspect]
     Indication: ANGER
     Route: 048
  5. SEROQUEL XR [Suspect]
     Indication: BIPOLAR DISORDER
     Route: 048
  6. CELEXA [Concomitant]
  7. TEGRETOL [Concomitant]

REACTIONS (3)
  - Feeling abnormal [Unknown]
  - Depressed mood [Unknown]
  - Drug dose omission [Unknown]
